FAERS Safety Report 6090978-5 (Version None)
Quarter: 2009Q1

REPORT INFORMATION
  Report Type: 
  Country: None (occurrence: None)
  Receive Date: 20090220
  Receipt Date: 20090220
  Transmission Date: 20090719
  Serious: No
  Sender: FDA-Public Use
  Company Number: None

PATIENT
  Sex: Female
  Weight: 95.91 kg

DRUGS (12)
  1. MS CONTIN [Suspect]
     Dosage: 15MG TABLET SA 15 MG Q8H ORAL
     Route: 048
     Dates: start: 20090115, end: 20090219
  2. ABILIFY [Concomitant]
  3. CYMBALTA [Concomitant]
  4. LAMICTAL [Concomitant]
  5. LITHIUM CARBONATE [Concomitant]
  6. LYRICA [Concomitant]
  7. METROGEL [Concomitant]
  8. NORETHINDRONE AND ETHINYL ESTRADIOL [Concomitant]
  9. OXYCODONE HCL [Suspect]
  10. PROTONIX [Concomitant]
  11. TRAZODONE HCL [Concomitant]
  12. XANAX [Concomitant]

REACTIONS (1)
  - SEDATION [None]
